FAERS Safety Report 9804777 (Version 3)
Quarter: 2014Q2

REPORT INFORMATION
  Report Type: Spontaneous
  Country: SE (occurrence: SE)
  Receive Date: 20140108
  Receipt Date: 20140407
  Transmission Date: 20141212
  Serious: Yes (Life-Threatening, Hospitalization, Other)
  Sender: FDA-Public Use
  Company Number: SE-RB-061942-13

PATIENT
  Age: 42 Year
  Sex: Male
  Weight: 78 kg

DRUGS (2)
  1. SUBOXONE TABLET [Suspect]
     Indication: DRUG DEPENDENCE
     Route: 065
     Dates: start: 201310, end: 2013
  2. SUBOXONE TABLET [Suspect]
     Route: 065
     Dates: start: 2013, end: 201312

REACTIONS (22)
  - Aggression [Recovered/Resolved with Sequelae]
  - Drug withdrawal syndrome [Recovered/Resolved with Sequelae]
  - Pruritus [Recovered/Resolved with Sequelae]
  - Migraine [Recovered/Resolved with Sequelae]
  - Depression [Recovered/Resolved with Sequelae]
  - Apathy [Unknown]
  - Irritability [Unknown]
  - Anxiety [Unknown]
  - Body temperature increased [Unknown]
  - Panic attack [Unknown]
  - Personality change [Recovered/Resolved with Sequelae]
  - Generalised tonic-clonic seizure [Recovered/Resolved with Sequelae]
  - Skin disorder [Recovered/Resolved with Sequelae]
  - Neurological symptom [Recovered/Resolved with Sequelae]
  - Hypersensitivity [Recovered/Resolved with Sequelae]
  - Chills [Unknown]
  - Hyperhidrosis [Unknown]
  - Dizziness [Recovered/Resolved with Sequelae]
  - Nausea [Recovered/Resolved with Sequelae]
  - Diarrhoea [Recovered/Resolved with Sequelae]
  - Sleep disorder [Recovered/Resolved with Sequelae]
  - Hostility [Recovered/Resolved with Sequelae]
